FAERS Safety Report 10611010 (Version 1)
Quarter: 2014Q4

REPORT INFORMATION
  Report Type: Spontaneous
  Country: BE (occurrence: BE)
  Receive Date: 20141126
  Receipt Date: 20141126
  Transmission Date: 20150529
  Serious: Yes (Disabling)
  Sender: FDA-Public Use
  Company Number: BE-BRISTOL-MYERS SQUIBB COMPANY-21612189

PATIENT
  Age: 62 Year
  Weight: 131 kg

DRUGS (9)
  1. PROZAC [Concomitant]
     Active Substance: FLUOXETINE HYDROCHLORIDE
  2. MOXONIDINE [Concomitant]
     Active Substance: MOXONIDINE
  3. CORUNO [Concomitant]
     Active Substance: MOLSIDOMINE
  4. LANTUS [Concomitant]
     Active Substance: INSULIN GLARGINE
  5. MANIPREX [Concomitant]
     Active Substance: LITHIUM CARBONATE
  6. NOBITEN [Concomitant]
  7. ONGLYZA [Suspect]
     Active Substance: SAXAGLIPTIN HYDROCHLORIDE
     Dates: start: 20140912
  8. AMLODIPINE [Concomitant]
     Active Substance: AMLODIPINE BESYLATE
  9. SOTALOL. [Concomitant]
     Active Substance: SOTALOL

REACTIONS (1)
  - Hypersensitivity vasculitis [Recovering/Resolving]
